FAERS Safety Report 22278361 (Version 4)
Quarter: 2024Q1

REPORT INFORMATION
  Report Type: Report from Study
  Country: GB (occurrence: GB)
  Receive Date: 20230503
  Receipt Date: 20240205
  Transmission Date: 20240410
  Serious: Yes (Other)
  Sender: FDA-Public Use
  Company Number: GB-PFM-2023-02524

PATIENT
  Age: 58 Year
  Sex: Female
  Weight: 72.5 kg

DRUGS (2)
  1. NERATINIB [Suspect]
     Active Substance: NERATINIB
     Indication: Breast cancer
     Dosage: 240 MG/DAY
     Route: 048
     Dates: start: 20230106, end: 20230331
  2. NERATINIB [Suspect]
     Active Substance: NERATINIB
     Dosage: UNK
     Route: 048
     Dates: start: 20230415

REACTIONS (6)
  - Renal impairment [Recovering/Resolving]
  - Lethargy [Unknown]
  - Blood magnesium decreased [Recovering/Resolving]
  - Anaemia [Recovering/Resolving]
  - COVID-19 [Recovered/Resolved]
  - Upper respiratory tract infection [Recovering/Resolving]

NARRATIVE: CASE EVENT DATE: 20230203
